FAERS Safety Report 13598179 (Version 3)
Quarter: 2017Q2

REPORT INFORMATION
  Report Type: Spontaneous
  Country: US (occurrence: US)
  Receive Date: 20170531
  Receipt Date: 20170615
  Transmission Date: 20170830
  Serious: Yes (Hospitalization)
  Sender: FDA-Public Use
  Company Number: US-LUNDBECK-DKLU2031179

PATIENT
  Age: 76 Year
  Sex: Male

DRUGS (4)
  1. NORTHERA [Suspect]
     Active Substance: DROXIDOPA
     Indication: ORTHOSTATIC HYPOTENSION
     Dosage: SCHEDULE C; WITHOUT TITRATION
     Route: 048
     Dates: start: 201705
  2. NORTHERA [Suspect]
     Active Substance: DROXIDOPA
     Indication: AUTONOMIC NEUROPATHY
     Dosage: SCHEDULE C; WITHOUT TITRATION
     Route: 048
     Dates: start: 20170420
  3. NORTHERA [Suspect]
     Active Substance: DROXIDOPA
     Indication: SYNCOPE
  4. NORTHERA [Suspect]
     Active Substance: DROXIDOPA
     Indication: DIZZINESS
     Dosage: SCHEDULE C; WITHOUT TITRATION
     Route: 048
     Dates: start: 20170420

REACTIONS (5)
  - Hypotension [Recovering/Resolving]
  - Loss of consciousness [Unknown]
  - Orthostatic hypotension [Unknown]
  - Labile blood pressure [Unknown]
  - Drug administration error [Unknown]

NARRATIVE: CASE EVENT DATE: 20170525
